FAERS Safety Report 18274416 (Version 1)
Quarter: 2020Q3

REPORT INFORMATION
  Report Type: Spontaneous
  Country: FR (occurrence: FR)
  Receive Date: 20200916
  Receipt Date: 20200916
  Transmission Date: 20201103
  Serious: Yes (Other)
  Sender: FDA-Public Use
  Company Number: FR-BAYER-2019-133389

PATIENT
  Age: 19 Year
  Sex: Male

DRUGS (5)
  1. SIRTURO [Suspect]
     Active Substance: BEDAQUILINE FUMARATE
     Indication: LYMPH NODE TUBERCULOSIS
     Dosage: 6 DF, OW
     Route: 048
     Dates: start: 20181201
  2. IZILOX [Suspect]
     Active Substance: MOXIFLOXACIN HYDROCHLORIDE
     Indication: LYMPH NODE TUBERCULOSIS
     Dosage: 400 MG, QD
     Route: 048
     Dates: start: 20181201
  3. LINEZOLIDE [Suspect]
     Active Substance: LINEZOLID
     Indication: LYMPH NODE TUBERCULOSIS
     Dosage: 600 MG, QD
     Route: 048
     Dates: start: 20181201
  4. LAMPRENE [Suspect]
     Active Substance: CLOFAZIMINE
     Indication: LYMPH NODE TUBERCULOSIS
     Dosage: 1 DF, QD
     Route: 048
     Dates: start: 20181201
  5. PIRILENE [Suspect]
     Active Substance: PYRAZINAMIDE
     Indication: LYMPH NODE TUBERCULOSIS
     Dosage: 3 DF, QD
     Route: 048
     Dates: start: 20181201

REACTIONS (1)
  - Iridocyclitis [Not Recovered/Not Resolved]

NARRATIVE: CASE EVENT DATE: 20190514
